FAERS Safety Report 7763109 (Version 4)
Quarter: 2013Q2

REPORT INFORMATION
  Report Type: Spontaneous
  Country: US (occurrence: US)
  Receive Date: 20110118
  Receipt Date: 20130402
  Transmission Date: 20140414
  Serious: Yes (Hospitalization)
  Sender: FDA-Public Use
  Company Number: US-BAYER-2011-004819

PATIENT
  Age: 46 Year
  Sex: Female
  Weight: 81.63 kg

DRUGS (7)
  1. YAZ [Suspect]
     Indication: MENSTRUATION IRREGULAR
     Dosage: 1 DF, QD
     Dates: start: 200811, end: 201008
  2. GIANVI [Suspect]
  3. TRICOR [Concomitant]
     Indication: HYPERCHOLESTEROLAEMIA
     Dosage: 145 MG, UNK
     Route: 048
  4. NAPROXEN [Concomitant]
     Dosage: 500 MG, UNK
  5. CYCLOBENZAPRINE [Concomitant]
     Dosage: 10 MG, UNK
  6. ALEVE [Concomitant]
     Route: 048
  7. PEPCID AC [Concomitant]
     Route: 048

REACTIONS (6)
  - Gallbladder disorder [None]
  - Pancreatitis [None]
  - Cholecystitis acute [None]
  - Pain [None]
  - Injury [None]
  - Emotional distress [None]
